FAERS Safety Report 4304433-3 (Version None)
Quarter: 2004Q1

REPORT INFORMATION
  Report Type: 
  Country: None (occurrence: None)
  Receive Date: 20040224
  Receipt Date: 20040216
  Transmission Date: 20041129
  Serious: Yes (Hospitalization)
  Sender: FDA-Public Use
  Company Number: 2004GB00412

PATIENT
  Age: 83 Year
  Sex: Male

DRUGS (11)
  1. LIDOCAINE [Suspect]
     Indication: ANAESTHESIA
     Dosage: 05-1 ML
  2. CALCIPOTRIOL [Suspect]
     Indication: PSORIASIS
     Dates: start: 19830101
  3. CYCLOPENTOLATE  HYDROCHLORIDE [Suspect]
     Indication: PREMEDICATION
     Dosage: 3 GTT DAILY TP
     Route: 061
     Dates: start: 20031104, end: 20031104
  4. PHENYLEPHRINE [Suspect]
     Indication: PREMEDICATION
     Dosage: 2 GTT DAILY TP
     Route: 061
     Dates: start: 20031104, end: 20031104
  5. CHLORAMPHENICOL [Suspect]
     Indication: PREMEDICATION
     Dosage: 1 GTT DAILY TP
     Route: 061
     Dates: start: 20031104, end: 20031104
  6. BENOXIL [Suspect]
  7. ALCON BETAXOLOL [Suspect]
  8. OCUFEN [Suspect]
     Indication: PREMEDICATION
     Dosage: 4 GTT DAILY TP
     Route: 061
  9. ISOBETADINE [Suspect]
  10. HEALONID [Suspect]
     Dosage: 0.85 ML DAILY TP
     Route: 061
  11. BETAMETHASONE [Suspect]

REACTIONS (3)
  - CORNEAL DISORDER [None]
  - OCULAR TOXICITY [None]
  - POST PROCEDURAL COMPLICATION [None]
